FAERS Safety Report 14315221 (Version 1)
Quarter: 2017Q4

REPORT INFORMATION
  Report Type: Spontaneous
  Country: GB (occurrence: GB)
  Receive Date: 20171221
  Receipt Date: 20171221
  Transmission Date: 20180321
  Serious: Yes (Hospitalization)
  Sender: FDA-Public Use
  Company Number: GB-TEVA-2017-GB-833863

PATIENT
  Age: 48 Year
  Sex: Female
  Weight: 96.4 kg

DRUGS (4)
  1. PIZOTIFEN [Concomitant]
     Active Substance: PIZOTYLINE
  2. PROPRANOLOL HYDROCHLORIDE. [Concomitant]
     Active Substance: PROPRANOLOL HYDROCHLORIDE
  3. ZINERYT [Concomitant]
  4. NITROFURANTOIN. [Suspect]
     Active Substance: NITROFURANTOIN
     Indication: URINARY TRACT INFECTION
     Dosage: 100 MILLIGRAM DAILY; NIGHT.
     Route: 048
     Dates: start: 2015, end: 20171008

REACTIONS (6)
  - Pneumonitis [Recovering/Resolving]
  - Dyspnoea [Unknown]
  - Drug-induced liver injury [Recovering/Resolving]
  - Liver function test abnormal [Recovering/Resolving]
  - Jaundice [Unknown]
  - Folliculitis [Recovering/Resolving]

NARRATIVE: CASE EVENT DATE: 201709
